FAERS Safety Report 19604262 (Version 1)
Quarter: 2021Q3

REPORT INFORMATION
  Report Type: Other
  Country: GB (occurrence: GB)
  Receive Date: 20210724
  Receipt Date: 20210724
  Transmission Date: 20211014
  Serious: No
  Sender: FDA-Public Use
  Company Number: GB-LUPIN PHARMACEUTICALS INC.-2021-12396

PATIENT
  Age: 31 Year
  Sex: Female
  Weight: 97 kg

DRUGS (10)
  1. EVACAL D3 [Concomitant]
     Indication: ILL-DEFINED DISORDER
     Dosage: 2 DOSAGE FORM, QD
     Route: 065
     Dates: start: 20190327
  2. SERTRALINE [Suspect]
     Active Substance: SERTRALINE HYDROCHLORIDE
     Indication: PRODUCT USED FOR UNKNOWN INDICATION
     Dosage: UNK
     Route: 065
     Dates: start: 20210708
  3. FOLIC ACID. [Concomitant]
     Active Substance: FOLIC ACID
     Indication: ILL-DEFINED DISORDER
     Dosage: 01 DOSAGE FORM, QD
     Route: 065
     Dates: start: 20201012
  4. PROMETHAZINE HYDROCHLORIDE. [Concomitant]
     Active Substance: PROMETHAZINE HYDROCHLORIDE
     Indication: ILL-DEFINED DISORDER
     Dosage: UNK UNK, PRN, TAKE ONE OR TWO TABLETS WHEN REQUIRED
     Route: 065
     Dates: start: 20201016
  5. METFORMIN [Concomitant]
     Active Substance: METFORMIN HYDROCHLORIDE
     Indication: ILL-DEFINED DISORDER
     Dosage: UNK UNK, BID, TO BE TAKEN TWICE DAILY WITH MEALS
     Route: 065
     Dates: start: 20200803
  6. SENNA [Concomitant]
     Active Substance: SENNA LEAF\SENNOSIDES\SENNOSIDES A AND B
     Indication: ILL-DEFINED DISORDER
     Dosage: 2 DOSAGE FORM, QD, TAKE TWO TABLETS AT NIGHT
     Route: 065
     Dates: start: 20201016
  7. FERROUS FUMARATE [Concomitant]
     Active Substance: FERROUS FUMARATE
     Indication: ILL-DEFINED DISORDER
     Dosage: 01 DOSAGE FORM, QD
     Route: 065
     Dates: start: 20190327
  8. PROPRANOLOL [Concomitant]
     Active Substance: PROPRANOLOL HYDROCHLORIDE
     Indication: ILL-DEFINED DISORDER
     Dosage: 01 DOSAGE FORM, QD (TAKE ONE AT NIGHT)
     Route: 065
     Dates: start: 20181108
  9. SONDATE XL [Concomitant]
     Active Substance: QUETIAPINE FUMARATE
     Indication: ILL-DEFINED DISORDER
     Dosage: 1 DOSAGE FORM, QD, TAKE ONE TABLET EVERY NIGHT
     Route: 065
     Dates: start: 20201016
  10. CARBIMAZOLE [Concomitant]
     Active Substance: CARBIMAZOLE
     Indication: ILL-DEFINED DISORDER
     Dosage: UNK UNK, QD, TAKE ONE TABLET DAILY IN ADDITION TO 10MG
     Route: 065
     Dates: start: 20201016

REACTIONS (1)
  - Hyperkinesia [Not Recovered/Not Resolved]

NARRATIVE: CASE EVENT DATE: 20210708
